FAERS Safety Report 16220031 (Version 1)
Quarter: 2019Q2

REPORT INFORMATION
  Report Type: Report from Study
  Country: US (occurrence: US)
  Receive Date: 20190420
  Receipt Date: 20190420
  Transmission Date: 20190711
  Serious: Yes (Other)
  Sender: FDA-Public Use
  Company Number: US-AMGEN-USASL2019040087

PATIENT
  Age: 64 Year
  Sex: Male
  Weight: 92.97 kg

DRUGS (3)
  1. EZETIMIBE. [Concomitant]
     Active Substance: EZETIMIBE
     Indication: HYPERLIPIDAEMIA
     Dosage: 10 MILLIGRAM, QD
     Dates: start: 20160118
  2. REPATHA [Suspect]
     Active Substance: EVOLOCUMAB
     Indication: HYPERCHOLESTEROLAEMIA
     Dosage: 140 MILLIGRAM, Q2WK
     Route: 065
     Dates: start: 201804
  3. REPATHA [Suspect]
     Active Substance: EVOLOCUMAB
     Indication: HYPERLIPIDAEMIA

REACTIONS (9)
  - Rash pruritic [Recovered/Resolved]
  - Feeling abnormal [Recovering/Resolving]
  - Glucose tolerance impaired [Unknown]
  - Rash macular [Recovered/Resolved]
  - Muscle fatigue [Recovering/Resolving]
  - Back pain [Recovering/Resolving]
  - Therapeutic product effect incomplete [Unknown]
  - Rash vesicular [Recovered/Resolved]
  - Arthralgia [Recovering/Resolving]

NARRATIVE: CASE EVENT DATE: 201901
